FAERS Safety Report 18760936 (Version 2)
Quarter: 2021Q1

REPORT INFORMATION
  Report Type: Report from Study
  Country: US (occurrence: US)
  Receive Date: 20210119
  Receipt Date: 20210318
  Transmission Date: 20210419
  Serious: No
  Sender: FDA-Public Use
  Company Number: NVSC2021US011161

PATIENT
  Sex: Female

DRUGS (1)
  1. COSENTYX [Suspect]
     Active Substance: SECUKINUMAB
     Indication: PSORIASIS
     Dosage: 150 MG, QMO
     Route: 058

REACTIONS (6)
  - Arthralgia [Not Recovered/Not Resolved]
  - Psoriasis [Recovering/Resolving]
  - Inappropriate schedule of product administration [Not Recovered/Not Resolved]
  - Joint swelling [Recovering/Resolving]
  - Therapeutic product effect incomplete [Not Recovered/Not Resolved]
  - Peripheral swelling [Recovering/Resolving]
